FAERS Safety Report 18405424 (Version 7)
Quarter: 2023Q4

REPORT INFORMATION
  Report Type: Spontaneous
  Country: US (occurrence: US)
  Receive Date: 20201020
  Receipt Date: 20231129
  Transmission Date: 20240109
  Serious: No
  Sender: FDA-Public Use
  Company Number: US-PFIZER INC-2020403271

PATIENT
  Age: 75 Year
  Sex: Female
  Weight: 49.895 kg

DRUGS (3)
  1. IBRANCE [Suspect]
     Active Substance: PALBOCICLIB
     Indication: Breast cancer female
     Dosage: 21 DAYS FOLLOWED BY 7 DAYS OFF
     Dates: start: 20180125
  2. IBRANCE [Suspect]
     Active Substance: PALBOCICLIB
     Indication: Breast cancer stage IV
     Dosage: DAILY FOR 21 DAYS ON AND 1 WEEK OFF
     Route: 048
     Dates: start: 2018
  3. FEMARA [Concomitant]
     Active Substance: LETROZOLE
     Dosage: UNK, DAILY
     Dates: start: 20180125

REACTIONS (4)
  - Fatigue [Unknown]
  - Dry skin [Unknown]
  - Osteoporosis [Unknown]
  - Osteoarthritis [Unknown]
